FAERS Safety Report 6529055-5 (Version None)
Quarter: 2010Q1

REPORT INFORMATION
  Report Type: 
  Country: None (occurrence: None)
  Receive Date: 20100106
  Receipt Date: 20100105
  Transmission Date: 20100710
  Serious: Yes (Other)
  Sender: FDA-Public Use
  Company Number: GB-PFIZER INC-2009312560

PATIENT
  Age: 17 Year
  Sex: Male

DRUGS (17)
  1. ACICLOVIR [Suspect]
     Indication: BURKITT'S LYMPHOMA
  2. TRIMETHOPRIM + SULFAMETHOXAZOLE [Suspect]
  3. DEXRAZOXANE [Suspect]
     Indication: BURKITT'S LYMPHOMA
  4. DOXORUBICIN HCL [Suspect]
     Indication: BURKITT'S LYMPHOMA
  5. METHOTREXATE SODIUM [Suspect]
     Indication: BURKITT'S LYMPHOMA
  6. PREDNISOLONE AND PREDNISOLONE STEAGLATE [Suspect]
     Indication: BURKITT'S LYMPHOMA
  7. VINCRISTINE SULFATE [Suspect]
     Indication: BURKITT'S LYMPHOMA
  8. CYCLOPHOSPHAMIDE [Suspect]
  9. ETOPOSIDE [Suspect]
     Indication: BURKITT'S LYMPHOMA
  10. ARA-C [Suspect]
     Indication: BURKITT'S LYMPHOMA
  11. ITRACONAZOLE [Suspect]
     Indication: PROPHYLAXIS
  12. MERCAPTOPURINE [Suspect]
     Indication: BURKITT'S LYMPHOMA
  13. RITUXIMAB [Suspect]
     Indication: BURKITT'S LYMPHOMA
     Dosage: 375 MG/M2, UNK
  14. TACROLIMUS [Suspect]
     Indication: IMMUNOSUPPRESSION
  15. THIOGUANINE [Suspect]
     Indication: BURKITT'S LYMPHOMA
  16. ONCOVIN [Concomitant]
  17. PREDNISONE [Concomitant]

REACTIONS (1)
  - NEUTROPENIA [None]
